FAERS Safety Report 7855640 (Version 3)
Quarter: 2012Q4

REPORT INFORMATION
  Report Type: 
  Country: US (occurrence: US)
  Receive Date: 20110315
  Receipt Date: 20121224
  Transmission Date: 20130627
  Serious: Yes (Life-Threatening, Hospitalization, Other)
  Sender: FDA-Public Use
  Company Number: US-ELI_LILLY_AND_COMPANY-US201103003353

PATIENT
  Sex: Male

DRUGS (1)
  1. BYETTA [Suspect]

REACTIONS (5)
  - Multi-organ failure [Unknown]
  - Pancreatitis acute [Unknown]
  - Coma [Recovered/Resolved]
  - Pancreatic neoplasm [Unknown]
  - Hypertriglyceridaemia [Unknown]
